FAERS Safety Report 6023769-1 (Version None)
Quarter: 2008Q4

REPORT INFORMATION
  Report Type: 
  Country: None (occurrence: None)
  Receive Date: 20081230
  Receipt Date: 20081219
  Transmission Date: 20090506
  Serious: Yes (Hospitalization)
  Sender: FDA-Public Use
  Company Number: FR-AMGEN-US324224

PATIENT
  Age: 36 Year
  Sex: Female

DRUGS (1)
  1. ENBREL [Suspect]
     Indication: RHEUMATOID ARTHRITIS
     Dosage: 1 INJECTION MONTHLY (DOSAGE STRENGTH UNSPECIFIED)
     Route: 058
     Dates: start: 20040701, end: 20080815

REACTIONS (2)
  - GLOMERULONEPHRITIS PROLIFERATIVE [None]
  - LUPUS NEPHRITIS [None]
